FAERS Safety Report 16033026 (Version 1)
Quarter: 2019Q1

REPORT INFORMATION
  Report Type: Spontaneous
  Country: US (occurrence: US)
  Receive Date: 20190305
  Receipt Date: 20190305
  Transmission Date: 20190418
  Serious: No
  Sender: FDA-Public Use
  Company Number: US-IMPAX LABORATORIES, LLC-2018-IPXL-02275

PATIENT
  Age: 80 Year
  Sex: Female

DRUGS (1)
  1. RYTARY [Suspect]
     Active Substance: CARBIDOPA\LEVODOPA
     Indication: PRODUCT USED FOR UNKNOWN INDICATION
     Dosage: 48.75/195 MG, 4 CAPSULES PER DAY
     Route: 065

REACTIONS (4)
  - Pain in extremity [Unknown]
  - Hypoacusis [Unknown]
  - Gait disturbance [Unknown]
  - Balance disorder [Unknown]
